FAERS Safety Report 23897053 (Version 1)
Quarter: 2024Q2

REPORT INFORMATION
  Report Type: Report from Study
  Country: KR (occurrence: KR)
  Receive Date: 20240524
  Receipt Date: 20240524
  Transmission Date: 20240715
  Serious: Yes (Hospitalization)
  Sender: FDA-Public Use
  Company Number: KR-PFIZER INC-PV202400064556

PATIENT
  Age: 78 Year
  Sex: Male
  Weight: 62.5 kg

DRUGS (49)
  1. VINCRISTINE SULFATE [Suspect]
     Active Substance: VINCRISTINE SULFATE
     Indication: Diffuse large B-cell lymphoma
     Dosage: UNK, EVERY 3 WEEKS
     Route: 042
     Dates: start: 20210517
  2. DOXORUBICIN [Suspect]
     Active Substance: DOXORUBICIN
     Indication: Diffuse large B-cell lymphoma
     Dosage: UNK, EVERY 3 WEEKS
     Route: 042
     Dates: start: 20210517
  3. INVESTIGATIONAL PRODUCT [Suspect]
     Active Substance: INVESTIGATIONAL PRODUCT
     Indication: Diffuse large B-cell lymphoma
     Dosage: UNK UNK, EVERY WEEK
     Route: 042
     Dates: start: 20210517
  4. INVESTIGATIONAL PRODUCT [Suspect]
     Active Substance: INVESTIGATIONAL PRODUCT
     Dosage: UNK, 1X/DAY (QD) LENALIDOMIDE/PLACEBO
     Route: 048
     Dates: start: 20210517
  5. CYCLOPHOSPHAMIDE [Suspect]
     Active Substance: CYCLOPHOSPHAMIDE
     Indication: Diffuse large B-cell lymphoma
     Dosage: UNK, EVERY 3 WEEKS; INFUSION
     Dates: start: 20210517
  6. PREDNISOLONE [Suspect]
     Active Substance: PREDNISOLONE
     Indication: Diffuse large B-cell lymphoma
     Dosage: UNK MILLIGRAM/SQ. METER, EVERY 3 WEEKS
     Route: 042
     Dates: start: 20210517
  7. RITUXIMAB [Suspect]
     Active Substance: RITUXIMAB
     Indication: Diffuse large B-cell lymphoma
     Dosage: UNK UNK, EVERY 3 WEEKS INFUSION
     Dates: start: 20210517
  8. DEXTROSE;POTASSIUM CHLORIDE;SODIUM CHLORIDE [Concomitant]
     Indication: Prophylaxis
     Dosage: UNK
     Dates: start: 20211124, end: 20211124
  9. BETHANECHOL CHLORIDE [Concomitant]
     Active Substance: BETHANECHOL CHLORIDE
     Dosage: UNK
     Dates: start: 20210614, end: 20211024
  10. THRUPASS ODT [Concomitant]
     Indication: Prophylaxis
     Dosage: UNK
     Dates: start: 20210630, end: 20220112
  11. ESCHERICHIA COLI [Concomitant]
     Active Substance: ESCHERICHIA COLI
     Indication: Prophylaxis
     Dosage: UNK
     Dates: start: 20211125, end: 20211227
  12. TAZOPERAN [Concomitant]
     Indication: Pneumonia
     Dosage: 18 MG, DAILY
     Route: 042
     Dates: start: 20211124, end: 20220112
  13. VITAMINS [Concomitant]
     Active Substance: VITAMINS
     Indication: Prophylaxis
     Dosage: UNK
     Dates: start: 20211124, end: 20211209
  14. SPATAM [Concomitant]
     Dosage: 12 ML, DAILY
     Route: 042
     Dates: start: 20211125
  15. CHLORPHENIRAMINE [Concomitant]
     Active Substance: CHLORPHENIRAMINE
     Dosage: UNK
     Dates: start: 20211125, end: 20211208
  16. FUNGIZONE [Concomitant]
     Active Substance: AMPHOTERICIN B
     Indication: Pneumonia
     Dosage: UNK
     Dates: start: 20211125, end: 20211127
  17. HYDROCORTISONE SODIUM SUCCINATE [Concomitant]
     Active Substance: HYDROCORTISONE SODIUM SUCCINATE
     Indication: Pneumonia
     Dosage: UNK
     Dates: start: 20211125, end: 20211127
  18. MEPERIDINE HYDROCHLORIDE [Concomitant]
     Active Substance: MEPERIDINE HYDROCHLORIDE
     Indication: Pneumonia
     Dosage: UNK
     Dates: start: 20211125, end: 20220112
  19. TACENOL [Concomitant]
     Indication: Pneumonia
     Dosage: UNK
     Dates: start: 20211125, end: 20220112
  20. DEXAMETHASONE [Concomitant]
     Active Substance: DEXAMETHASONE
     Indication: Pneumonia
     Dosage: UNK
     Dates: start: 20211126, end: 20211230
  21. PANTOPRAZOLE SODIUM [Concomitant]
     Active Substance: PANTOPRAZOLE SODIUM
     Indication: Pneumonia
     Dosage: UNK
     Dates: start: 20211126, end: 20211208
  22. AMINO ACIDS, SOURCE UNSPECIFIED [Concomitant]
     Active Substance: AMINO ACIDS, SOURCE UNSPECIFIED
     Dosage: UNK
     Dates: start: 20211126, end: 20220113
  23. MIDAZOLAM [Concomitant]
     Active Substance: MIDAZOLAM
     Dosage: UNK
     Dates: start: 20211126, end: 20211126
  24. FENTANYL CITRATE [Concomitant]
     Active Substance: FENTANYL CITRATE
     Dosage: UNK
     Dates: start: 20211126, end: 20211126
  25. LIDOCAINE [Concomitant]
     Active Substance: LIDOCAINE
     Dosage: UNK
     Dates: start: 20211126, end: 20211126
  26. FLUNIL [MEFENAMIC ACID] [Concomitant]
     Dosage: UNK
     Dates: start: 20211126, end: 20211126
  27. KCL [Concomitant]
     Active Substance: POTASSIUM CHLORIDE
     Dosage: UNK
     Dates: start: 20211127, end: 20211128
  28. K CONTIN [Concomitant]
     Dosage: UNK
     Dates: start: 20211127, end: 20211209
  29. GANAKHAN [Concomitant]
     Dosage: UNK
     Dates: start: 20211128, end: 20211128
  30. MECKOOL [Concomitant]
     Dosage: UNK
     Dates: start: 20211201, end: 20211201
  31. SPIRONOLACTONE [Concomitant]
     Active Substance: SPIRONOLACTONE
     Dosage: UNK
     Dates: start: 20211202, end: 20211206
  32. TASNA [Concomitant]
     Dosage: UNK
     Dates: start: 20211205, end: 20211207
  33. LANSOPRAZOLE [Concomitant]
     Active Substance: LANSOPRAZOLE
     Dosage: UNK
     Dates: start: 20211210, end: 20211217
  34. PACETA [Concomitant]
     Dosage: UNK
     Dates: start: 20211227, end: 20211229
  35. LEVOFLOXACIN [Concomitant]
     Active Substance: LEVOFLOXACIN
     Dosage: UNK
     Dates: start: 20211227, end: 20220108
  36. LEVOFLOXACIN [Concomitant]
     Active Substance: LEVOFLOXACIN
     Dosage: 750 MG, 1X/DAY
     Route: 042
     Dates: start: 20220109
  37. TAZOBACTAM [Concomitant]
     Active Substance: TAZOBACTAM
     Dosage: UNK
     Dates: start: 20211227, end: 20220108
  38. TAZOBACTAM [Concomitant]
     Active Substance: TAZOBACTAM
     Dosage: 4.5 G, 3X/DAY
     Route: 042
     Dates: start: 20220109
  39. EFECTRA [Concomitant]
     Indication: Pneumonia
     Dosage: 200 MG, 2X/DAY
     Route: 048
     Dates: start: 20211209, end: 20220213
  40. HUMAN PLASMA [Concomitant]
     Active Substance: HUMAN PLASMA
     Dosage: UNK
     Dates: start: 20211227, end: 20211227
  41. LITAINE [Concomitant]
     Dosage: UNK
     Dates: start: 20211126, end: 20211126
  42. PENPOL [Concomitant]
     Dosage: UNK
     Dates: start: 20211202, end: 20211217
  43. URSODIOL [Concomitant]
     Active Substance: URSODIOL
     Dosage: UNK
     Dates: start: 20220101, end: 20220123
  44. GODEX [ADENINE HYDROCHLORIDE;BIFENDATE;CARNITINE OROTATE;CYANOCOBALAMI [Concomitant]
     Dosage: UNK
     Dates: start: 20220101, end: 20220123
  45. DIMETHICONE\PANCRELIPASE\URSODIOL [Concomitant]
     Active Substance: DIMETHICONE\PANCRELIPASE\URSODIOL
     Dosage: UNK
     Dates: start: 20220104, end: 20220105
  46. FESTAL PLUS [Concomitant]
     Active Substance: DIMETHICONE\PANCRELIPASE\URSODIOL
     Dosage: UNK
     Dates: start: 20220106, end: 20220117
  47. LAFUTIDINE [Concomitant]
     Active Substance: LAFUTIDINE
     Dosage: UNK
     Dates: start: 20220108, end: 20220712
  48. CEFDITOREN PIVOXIL [Concomitant]
     Active Substance: CEFDITOREN PIVOXIL
     Dosage: UNK
     Dates: start: 20220418, end: 20220422
  49. LEVOFLOXACIN [Concomitant]
     Active Substance: LEVOFLOXACIN
     Dosage: UNK
     Dates: start: 20211227, end: 20220108

REACTIONS (1)
  - Pneumonia [Recovered/Resolved]

NARRATIVE: CASE EVENT DATE: 20211124
